FAERS Safety Report 14967411 (Version 1)
Quarter: 2018Q2

REPORT INFORMATION
  Report Type: Report from Study
  Country: BR (occurrence: BR)
  Receive Date: 20180604
  Receipt Date: 20180604
  Transmission Date: 20180711
  Serious: Yes (Hospitalization, Other)
  Sender: FDA-Public Use
  Company Number: BR-ROCHE-1849641

PATIENT
  Age: 68 Year
  Sex: Female
  Weight: 69 kg

DRUGS (7)
  1. FLU VACCINE [Concomitant]
     Active Substance: INFLUENZA VIRUS VACCINE
     Indication: PRODUCT USED FOR UNKNOWN INDICATION
     Route: 065
  2. XOLAIR [Suspect]
     Active Substance: OMALIZUMAB
     Indication: ASTHMA
     Dosage: 450 MG (3 INJECTION) EVERY 15 DAYS
     Route: 058
     Dates: start: 2015
  3. SALBUTAMOL [Concomitant]
     Active Substance: ALBUTEROL
     Indication: DYSPNOEA
     Dosage: UNK UNK, BID (ONCE IN THE MORNING AND  (ONCE IN THE NIGHT)
     Route: 065
  4. XOLAIR [Suspect]
     Active Substance: OMALIZUMAB
     Route: 058
     Dates: start: 20180508
  5. CLENIL (BRAZIL) [Concomitant]
     Indication: ASTHMA
     Dosage: (ONCE IN THE MORNING AND ONCE IN THE NIGHT)
     Route: 065
  6. BECLOMETHASONE [Concomitant]
     Active Substance: BECLOMETHASONE
     Indication: ASTHMA
     Dosage: UNK UNK, BID (ONCE IN THE MORNING AND  (ONCE IN THE NIGHT)
     Route: 065
  7. SALBUTAMOL [Concomitant]
     Active Substance: ALBUTEROL
     Indication: ASTHMA
     Dosage: UNK
     Route: 055

REACTIONS (23)
  - Fall [Unknown]
  - Intervertebral disc protrusion [Unknown]
  - Dyspnoea [Not Recovered/Not Resolved]
  - Pain [Not Recovered/Not Resolved]
  - Concomitant disease aggravated [Unknown]
  - Lung infection [Recovered/Resolved]
  - Sensitivity to weather change [Unknown]
  - Cough [Not Recovered/Not Resolved]
  - Fibromyalgia [Unknown]
  - Bedridden [Unknown]
  - Wheezing [Not Recovered/Not Resolved]
  - Influenza [Recovered/Resolved]
  - Influenza [Not Recovered/Not Resolved]
  - Drug ineffective [Unknown]
  - Osteoporosis [Unknown]
  - Asthmatic crisis [Recovering/Resolving]
  - Upper limb fracture [Not Recovered/Not Resolved]
  - Fatigue [Recovering/Resolving]
  - Chest pain [Recovering/Resolving]
  - Asthma [Recovering/Resolving]
  - Body height decreased [Unknown]
  - Malaise [Unknown]
  - Catarrh [Recovered/Resolved]

NARRATIVE: CASE EVENT DATE: 20160425
